FAERS Safety Report 10768326 (Version 3)
Quarter: 2015Q1

REPORT INFORMATION
  Report Type: Spontaneous
  Country: US (occurrence: US)
  Receive Date: 20150206
  Receipt Date: 20150211
  Transmission Date: 20150721
  Serious: Yes (Other)
  Sender: FDA-Public Use
  Company Number: US-DRREDDYS-USA/USA/15/0045819

PATIENT
  Age: 13 Year
  Sex: Female

DRUGS (2)
  1. ZENATANE [Suspect]
     Active Substance: ISOTRETINOIN
     Route: 065
     Dates: start: 20141201, end: 20150202
  2. ZENATANE [Suspect]
     Active Substance: ISOTRETINOIN
     Indication: ACNE
     Route: 065
     Dates: start: 20141028

REACTIONS (2)
  - Fatigue [Recovered/Resolved]
  - Anxiety [Recovered/Resolved]

NARRATIVE: CASE EVENT DATE: 20141111
